APPROVED DRUG PRODUCT: ACETAMINOPHEN, CAFFEINE, AND DIHYDROCODEINE BITARTRATE
Active Ingredient: ACETAMINOPHEN; CAFFEINE; DIHYDROCODEINE BITARTRATE
Strength: 712.8MG;60MG;32MG
Dosage Form/Route: TABLET;ORAL
Application: A040316 | Product #001
Applicant: MIKART LLC
Approved: Apr 28, 1999 | RLD: No | RS: No | Type: DISCN